FAERS Safety Report 20991049 (Version 1)
Quarter: 2022Q2

REPORT INFORMATION
  Report Type: Report from Study
  Country: FR (occurrence: FR)
  Receive Date: 20220622
  Receipt Date: 20220622
  Transmission Date: 20220721
  Serious: Yes (Other)
  Sender: FDA-Public Use
  Company Number: FR-CELGENE-FRA-20220107732

PATIENT
  Age: 55 Year
  Sex: Male
  Weight: 95 kg

DRUGS (3)
  1. FLUDARABINE [Suspect]
     Active Substance: FLUDARABINE PHOSPHATE
     Indication: Plasma cell myeloma
     Dosage: UNIT DOSE : 30 MILLIGRAM/SQ. METER, FREQUENCY TIME : 1 DAYS , DURATION : 2 DAYS
     Route: 041
     Dates: start: 20211008, end: 20211010
  2. ABECMA [Suspect]
     Active Substance: IDECABTAGENE VICLEUCEL
     Indication: Plasma cell myeloma
     Dosage: CAR+T CELLS
     Route: 041
     Dates: start: 20211013, end: 20211013
  3. CYCLOPHOSPHAMIDE [Suspect]
     Active Substance: CYCLOPHOSPHAMIDE
     Indication: Plasma cell myeloma
     Dosage: UNIT DOSE : 300 MILLIGRAM/SQ. METER , FREQUENCY TIME : 1 DAYS , DURATION : 2 DAYS
     Route: 041
     Dates: start: 20211008, end: 20211010

REACTIONS (4)
  - Cytokine release syndrome [Recovered/Resolved]
  - Hypogammaglobulinaemia [Not Recovered/Not Resolved]
  - Neutropenia [Recovered/Resolved]
  - Cytopenia [Unknown]

NARRATIVE: CASE EVENT DATE: 20211012
